FAERS Safety Report 15307078 (Version 1)
Quarter: 2018Q3

REPORT INFORMATION
  Report Type: Spontaneous
  Country: US (occurrence: US)
  Receive Date: 20180822
  Receipt Date: 20180822
  Transmission Date: 20181010
  Serious: No
  Sender: FDA-Public Use
  Company Number: US-INCYTE CORPORATION-2018IN008280

PATIENT

DRUGS (1)
  1. JAKAFI [Suspect]
     Active Substance: RUXOLITINIB
     Indication: POLYCYTHAEMIA
     Dosage: 20 MG, TWICE A DAY FOR 2 WEEKS ON THEN 1
     Route: 048
     Dates: start: 20170502

REACTIONS (3)
  - Vertigo [Unknown]
  - Disturbance in attention [Unknown]
  - Dizziness [Unknown]
